FAERS Safety Report 5111642-2 (Version None)
Quarter: 2006Q3

REPORT INFORMATION
  Report Type: 
  Country: None (occurrence: None)
  Receive Date: 20060920
  Receipt Date: 20060920
  Transmission Date: 20061208
  Serious: Yes (Other)
  Sender: FDA-Public Use
  Company Number: None

PATIENT
  Age: 47 Year
  Sex: Female
  Weight: 74.8435 kg

DRUGS (1)
  1. TRIAZOLAM [Suspect]
     Indication: SLEEP DISORDER
     Dosage: 2 TABLETS DAILY-NITETIME- PO
     Route: 048
     Dates: start: 20060624, end: 20060916

REACTIONS (2)
  - AMNESIA [None]
  - IMPAIRED DRIVING ABILITY [None]
